FAERS Safety Report 6470444-5 (Version None)
Quarter: 2009Q4

REPORT INFORMATION
  Report Type: 
  Country: None (occurrence: None)
  Receive Date: 20091202
  Receipt Date: 20091202
  Transmission Date: 20100525
  Serious: Yes (Life-Threatening, Hospitalization)
  Sender: FDA-Public Use
  Company Number: None

PATIENT
  Age: 73 Year
  Sex: Female
  Weight: 74.3899 kg

DRUGS (6)
  1. TICLOPIDINE HCL [Suspect]
     Indication: CORONARY ARTERIAL STENT INSERTION
     Dosage: 250MG TWICE DAILY PO
     Route: 048
     Dates: start: 20090909, end: 20091114
  2. LIPITOR [Concomitant]
  3. ASPIRIN [Concomitant]
  4. AMLODIPINE [Concomitant]
  5. ATORVASTATIN CALCIUM [Concomitant]
  6. METOPROLOL TARTRATE [Concomitant]

REACTIONS (2)
  - APLASTIC ANAEMIA [None]
  - NO THERAPEUTIC RESPONSE [None]
